FAERS Safety Report 5841988-1 (Version None)
Quarter: 2008Q3

REPORT INFORMATION
  Report Type: 
  Country: None (occurrence: None)
  Receive Date: 20080812
  Receipt Date: 20020502
  Transmission Date: 20090109
  Serious: Yes (Hospitalization)
  Sender: FDA-Public Use
  Company Number: US-MERCK-01082032B1

PATIENT
  Age: 0 Day
  Sex: Female
  Weight: 1 kg

DRUGS (3)
  1. SINGULAIR [Suspect]
     Indication: ASTHMA
     Route: 064
     Dates: start: 20010601
  2. ZYRTEC [Concomitant]
     Route: 064
     Dates: start: 20010601
  3. VITAMINS (UNSPECIFIED) [Concomitant]
     Route: 064

REACTIONS (1)
  - PREMATURE BABY [None]
